FAERS Safety Report 7474845-8 (Version None)
Quarter: 2011Q2

REPORT INFORMATION
  Report Type: 
  Country: None (occurrence: None)
  Receive Date: 20110512
  Receipt Date: 20110401
  Transmission Date: 20111010
  Serious: Yes (Hospitalization)
  Sender: FDA-Public Use
  Company Number: US-BAYER-200941660NA

PATIENT
  Age: 37 Year
  Sex: Female
  Weight: 85.714 kg

DRUGS (9)
  1. BENTYL [Concomitant]
  2. ACETAMINOPHEN/CODIENE [Concomitant]
     Indication: PAIN
  3. CYCLOBENZAPRINE [Concomitant]
     Indication: PAIN
  4. YASMIN [Suspect]
     Indication: ORAL CONTRACEPTION
     Dosage: UNK UNK, QD
     Dates: start: 20040101, end: 20091001
  5. NAPROXEN (ALEVE) [Concomitant]
  6. IBUPROFEN [Concomitant]
     Indication: INFLAMMATION
  7. MOTRIN [Concomitant]
  8. NAPROXEN [Concomitant]
  9. DICYCLOMINE [Concomitant]
     Indication: ABDOMINAL DISCOMFORT

REACTIONS (1)
  - CHOLELITHIASIS [None]
